FAERS Safety Report 4990562-8 (Version None)
Quarter: 2006Q2

REPORT INFORMATION
  Report Type: 
  Country: None (occurrence: None)
  Receive Date: 20060427
  Receipt Date: 20060421
  Transmission Date: 20061013
  Serious: Yes (Other)
  Sender: FDA-Public Use
  Company Number: 006972

PATIENT
  Age: 24 Year
  Sex: Female

DRUGS (1)
  1. CLARAVIS [Suspect]
     Dosage: 40 MG QD ORAL
     Route: 048
     Dates: start: 20051206

REACTIONS (2)
  - DRUG EXPOSURE DURING PREGNANCY [None]
  - UNINTENDED PREGNANCY [None]
